FAERS Safety Report 8888943 (Version 1)
Quarter: 2012Q4

REPORT INFORMATION
  Report Type: 
  Country: HK (occurrence: HK)
  Receive Date: 20121106
  Receipt Date: 20121106
  Transmission Date: 20130627
  Serious: Yes (Hospitalization)
  Sender: FDA-Public Use
  Company Number: HK-MYLANLABS-2012S1022260

PATIENT
  Age: 49 Year
  Sex: Male

DRUGS (8)
  1. LITHIUM [Suspect]
     Indication: BIPOLAR DISORDER
     Dosage: 400mg in morning and 600mg at night
     Route: 065
  2. TRIFLUOPERAZINE [Concomitant]
     Indication: BIPOLAR DISORDER
     Route: 065
  3. ARTANE [Concomitant]
     Indication: BIPOLAR DISORDER
     Route: 065
  4. ASPIRIN [Concomitant]
     Indication: CARDIOMYOPATHY
     Route: 065
  5. ACERTIL [Concomitant]
     Indication: CARDIOMYOPATHY
     Route: 065
  6. CARVEDILOL [Concomitant]
     Indication: CARDIOMYOPATHY
     Route: 065
  7. FUROSEMIDE [Concomitant]
     Indication: CARDIOMYOPATHY
     Route: 065
  8. ALDACTONE [Concomitant]
     Indication: CARDIOMYOPATHY
     Route: 065

REACTIONS (3)
  - Neuropathy peripheral [Recovering/Resolving]
  - Toxicity to various agents [Recovering/Resolving]
  - Metabolic encephalopathy [Recovered/Resolved]
